FAERS Safety Report 8044732-5 (Version None)
Quarter: 2012Q1

REPORT INFORMATION
  Report Type: 
  Country: None (occurrence: None)
  Receive Date: 20120113
  Receipt Date: 20120110
  Transmission Date: 20120608
  Serious: Yes (Other)
  Sender: FDA-Public Use
  Company Number: US-PFIZER INC-2012008299

PATIENT
  Sex: Female
  Weight: 68.027 kg

DRUGS (3)
  1. PREMARIN [Suspect]
     Dosage: UNK, TWO TO THREE TIMES A WEEK
     Route: 067
  2. PREMARIN [Suspect]
     Indication: HORMONE REPLACEMENT THERAPY
     Dosage: UNK, DAILY
     Route: 067
     Dates: start: 20111101
  3. SYNTHROID [Concomitant]
     Indication: THYROID DISORDER
     Dosage: 0.088 MG, DAILY

REACTIONS (1)
  - URINARY TRACT INFECTION [None]
